FAERS Safety Report 18975979 (Version 2)
Quarter: 2021Q1

REPORT INFORMATION
  Report Type: Report from Study
  Country: CZ (occurrence: CZ)
  Receive Date: 20210305
  Receipt Date: 20210319
  Transmission Date: 20210420
  Serious: Yes (Other)
  Sender: FDA-Public Use
  Company Number: CZ-TEVA-2021-CZ-1880763

PATIENT
  Age: 36 Year
  Sex: Female

DRUGS (1)
  1. COPAXONE [Suspect]
     Active Substance: GLATIRAMER ACETATE
     Dates: start: 20170918

REACTIONS (8)
  - Injection site scab [Not Recovered/Not Resolved]
  - Injection site erythema [Recovering/Resolving]
  - Injection site haemorrhage [Recovering/Resolving]
  - Injection site swelling [Recovering/Resolving]
  - Injection site induration [Not Recovered/Not Resolved]
  - Wrong technique in product usage process [Unknown]
  - Injection site bruising [Recovering/Resolving]
  - Injection site pain [Recovering/Resolving]

NARRATIVE: CASE EVENT DATE: 202102
